FAERS Safety Report 7783290-7 (Version None)
Quarter: 2011Q3

REPORT INFORMATION
  Report Type: 
  Country: None (occurrence: None)
  Receive Date: 20110928
  Receipt Date: 20110916
  Transmission Date: 20111222
  Serious: No
  Sender: FDA-Public Use
  Company Number: US-JNJFOC-20110907824

PATIENT
  Sex: Female
  Weight: 54.43 kg

DRUGS (11)
  1. FENTANYL-100 [Suspect]
     Indication: RADICULAR PAIN
     Dosage: 25 UG/HR PATCH 1 EVERY 72 HOURS AND 12.5 UG/HR PATCH 1 EVERY 72 HOURS
     Route: 062
     Dates: start: 20090101
  2. PERCOCET [Concomitant]
     Indication: PAIN
     Route: 048
     Dates: start: 20110101
  3. DURAGESIC-100 [Suspect]
     Route: 062
     Dates: start: 20110101
  4. OXYCODONE [Concomitant]
     Indication: PAIN
     Dosage: 1-2 TABLET AS NEEDED
     Route: 048
  5. DURAGESIC-100 [Suspect]
     Indication: RADICULAR PAIN
     Dosage: 25 UG/HR PATCH 1 EVERY 72 HOURS AND 12.5 UG/HR 1 EVERY 72 HOURS
     Route: 062
     Dates: end: 20110101
  6. FLUTICASONE PROPIONATE [Concomitant]
     Indication: MULTIPLE ALLERGIES
     Route: 048
  7. OMEPRAZOLE [Concomitant]
     Indication: GASTROOESOPHAGEAL REFLUX DISEASE
     Route: 048
  8. SINGULAIR [Concomitant]
     Indication: ASTHMA
     Route: 048
  9. ADVAIR DISKUS 100/50 [Concomitant]
     Indication: ASTHMA
     Route: 048
     Dates: end: 20100101
  10. NORVASC [Concomitant]
     Indication: CARDIAC DISORDER
     Route: 048
  11. SIMVASTATIN [Concomitant]
     Indication: BLOOD CHOLESTEROL INCREASED
     Route: 048

REACTIONS (3)
  - APPLICATION SITE IRRITATION [None]
  - DRUG INEFFECTIVE [None]
  - DRUG ADMINISTERED AT INAPPROPRIATE SITE [None]
